FAERS Safety Report 25571387 (Version 1)
Quarter: 2025Q3

REPORT INFORMATION
  Report Type: Spontaneous
  Country: US (occurrence: US)
  Receive Date: 20250717
  Receipt Date: 20250717
  Transmission Date: 20251021
  Serious: No
  Sender: BRISTOL-MYERS SQUIBB COMPANY
  Company Number: US-BRISTOL-MYERS SQUIBB COMPANY-2025-100252

PATIENT
  Age: 77 Year
  Sex: Male

DRUGS (2)
  1. REVLIMID [Suspect]
     Active Substance: LENALIDOMIDE
     Indication: Product used for unknown indication
     Dosage: QD
     Route: 048
     Dates: start: 20250626, end: 20250703
  2. REVLIMID [Suspect]
     Active Substance: LENALIDOMIDE
     Dosage: NEW CYCLE-TAKE 21 DAYS THEN 7 DAYS OFF
     Dates: start: 20250710

REACTIONS (1)
  - Full blood count abnormal [Unknown]
